FAERS Safety Report 12950510 (Version 3)
Quarter: 2016Q4

REPORT INFORMATION
  Report Type: Spontaneous
  Country: CH (occurrence: CH)
  Receive Date: 20161116
  Receipt Date: 20161202
  Transmission Date: 20170207
  Serious: Yes (Death)
  Sender: FDA-Public Use
  Company Number: CH-ELI_LILLY_AND_COMPANY-CH201611004896

PATIENT
  Age: 89 Year
  Sex: Male
  Weight: 62 kg

DRUGS (10)
  1. CONCOR [Concomitant]
     Active Substance: BISOPROLOL FUMARATE
     Indication: ATRIAL FLUTTER
     Dosage: 2.5 MG, QD
     Route: 048
  2. ZYPREXA [Suspect]
     Active Substance: OLANZAPINE
     Indication: DELIRIUM
     Dosage: 5 MG, EACH EVENING
     Route: 048
     Dates: start: 20161105
  3. VITARUBIN                          /00056201/ [Concomitant]
     Dosage: 1000 UG, WEEKLY (1/W)
     Route: 042
  4. FOLIC ACID. [Concomitant]
     Active Substance: FOLIC ACID
     Dosage: 5 MG, WEEKLY (1/W)
     Route: 065
  5. PHOSCAP [Concomitant]
     Dosage: UNK, QD
     Route: 048
  6. DISTRANEURIN                       /00027501/ [Concomitant]
     Active Substance: CLOMETHIAZOLE
     Dosage: 192 MG, QD
     Route: 048
     Dates: start: 20161104
  7. SERESTA [Concomitant]
     Active Substance: OXAZEPAM
     Dosage: 15 MG, PRN
     Route: 065
     Dates: start: 20161104
  8. PIPERACILLIN/TAZOBACTAM [Concomitant]
     Active Substance: PIPERACILLIN SODIUM\TAZOBACTAM SODIUM
     Indication: PLEURAL EFFUSION
     Dosage: 4.5 MG, TID
     Route: 042
     Dates: start: 20161104
  9. VI-DE 3 [Concomitant]
     Active Substance: CHOLECALCIFEROL
     Dosage: 17 DF, QD
     Route: 048
  10. RIVOTRIL [Concomitant]
     Active Substance: CLONAZEPAM
     Indication: PARASOMNIA
     Dosage: UNK, QD
     Route: 048
     Dates: start: 20161107

REACTIONS (2)
  - Cardio-respiratory arrest [Fatal]
  - Thoracic haemorrhage [Fatal]

NARRATIVE: CASE EVENT DATE: 20161110
